FAERS Safety Report 5500299-4 (Version None)
Quarter: 2007Q4

REPORT INFORMATION
  Report Type: 
  Country: None (occurrence: None)
  Receive Date: 20071029
  Receipt Date: 20071024
  Transmission Date: 20080405
  Serious: Yes (Hospitalization)
  Sender: FDA-Public Use
  Company Number: GB-BRISTOL-MYERS SQUIBB COMPANY-13955323

PATIENT
  Age: 50 Year
  Sex: Male

DRUGS (3)
  1. ABILIFY [Suspect]
     Indication: SCHIZOPHRENIA
     Dates: end: 20071021
  2. FLUOXETINE [Concomitant]
  3. RAMIPRIL [Concomitant]

REACTIONS (3)
  - RASH [None]
  - RENAL FAILURE ACUTE [None]
  - VASCULITIS [None]
